FAERS Safety Report 18611680 (Version 1)
Quarter: 2020Q4

REPORT INFORMATION
  Report Type: Spontaneous
  Country: GB (occurrence: GB)
  Receive Date: 20201214
  Receipt Date: 20201214
  Transmission Date: 20210114
  Serious: Yes (Hospitalization)
  Sender: FDA-Public Use
  Company Number: GB-LUPIN PHARMACEUTICALS INC.-2020-03907

PATIENT
  Age: 40 Year
  Sex: Female

DRUGS (5)
  1. MORPHINE [Suspect]
     Active Substance: MORPHINE
     Indication: PAIN IN EXTREMITY
     Dosage: UNK
     Route: 042
  2. FENTANYL. [Suspect]
     Active Substance: FENTANYL
     Indication: EPIDURAL ANALGESIA
     Dosage: 2 MICROGRAM.ML-1
     Route: 008
  3. BUPIVICAINE [Suspect]
     Active Substance: BUPIVACAINE
     Indication: EPIDURAL ANALGESIA
     Dosage: 2.5 MILLILITER, 0.5% HYPERBARIC BUPIVACAINE 2.5 ML WITH DIAMORPHINE 300 MICROGRAM
     Route: 024
  4. DIAMORPHINE [Suspect]
     Active Substance: DIAMORPHINE
     Indication: SPINAL ANAESTHESIA
     Dosage: 300 MICROGRAM
     Route: 024
  5. OXYTOCIN. [Suspect]
     Active Substance: OXYTOCIN
     Indication: LABOUR INDUCTION
     Dosage: UNK
     Route: 065

REACTIONS (2)
  - Maternal exposure during delivery [Unknown]
  - Drug ineffective [Unknown]
